FAERS Safety Report 6966227-X (Version None)
Quarter: 2010Q3

REPORT INFORMATION
  Report Type: 
  Country: None (occurrence: None)
  Receive Date: 20100903
  Receipt Date: 20100824
  Transmission Date: 20110219
  Serious: Yes (Hospitalization)
  Sender: FDA-Public Use
  Company Number: US-ELI_LILLY_AND_COMPANY-US201005003565

PATIENT
  Sex: Female

DRUGS (8)
  1. ZYPREXA [Suspect]
     Indication: DEPRESSION
     Dosage: 2.5 MG, EACH EVENING
  2. ZYPREXA [Suspect]
     Dosage: 2.5 MG, EACH EVENING
  3. ZYPREXA [Suspect]
     Dosage: 3.75 MG, UNK
     Dates: end: 20100818
  4. REMERON [Concomitant]
  5. ATIVAN [Concomitant]
  6. PRILOSEC [Concomitant]
  7. VITAMIN D [Concomitant]
  8. TRAZODONE HCL [Concomitant]
     Dates: start: 20100819

REACTIONS (21)
  - ABDOMINAL DISCOMFORT [None]
  - ABDOMINAL PAIN UPPER [None]
  - ANXIETY [None]
  - ASTHENIA [None]
  - CARBOHYDRATE ANTIGEN 125 INCREASED [None]
  - DECREASED APPETITE [None]
  - DEPRESSION [None]
  - DRUG INEFFECTIVE [None]
  - FEELING COLD [None]
  - INSOMNIA [None]
  - MALAISE [None]
  - NERVOUSNESS [None]
  - OFF LABEL USE [None]
  - OROPHARYNGEAL PAIN [None]
  - OVARIAN CYST [None]
  - OVARIAN MASS [None]
  - POTENTIATING DRUG INTERACTION [None]
  - PRURITUS [None]
  - SOMNOLENCE [None]
  - TREMOR [None]
  - WEIGHT DECREASED [None]
